FAERS Safety Report 14945017 (Version 1)
Quarter: 2018Q2

REPORT INFORMATION
  Report Type: Spontaneous
  Country: US (occurrence: US)
  Receive Date: 20180529
  Receipt Date: 20180529
  Transmission Date: 20180711
  Serious: Yes (Hospitalization)
  Sender: FDA-Public Use
  Company Number: US-ROCHE-2130764

PATIENT
  Age: 81 Year
  Sex: Female

DRUGS (18)
  1. TRAMADOL HCL [Concomitant]
     Active Substance: TRAMADOL HYDROCHLORIDE
     Dosage: 5
     Route: 065
     Dates: start: 20180510
  2. BUMETANIDE. [Concomitant]
     Active Substance: BUMETANIDE
     Route: 065
     Dates: start: 20180328
  3. INSULIN [Concomitant]
     Active Substance: INSULIN NOS
     Dosage: MIS 0.5
     Route: 065
     Dates: start: 20180227
  4. PREDNISONE. [Concomitant]
     Active Substance: PREDNISONE
     Route: 065
     Dates: start: 20180226
  5. PANTOPRAZOLE [Concomitant]
     Active Substance: PANTOPRAZOLE
     Route: 065
     Dates: start: 20180510
  6. FAMOTIDINE. [Concomitant]
     Active Substance: FAMOTIDINE
     Route: 065
     Dates: start: 20180225
  7. ASPIR-LOW [Concomitant]
     Active Substance: ASPIRIN
     Route: 065
     Dates: start: 20180510
  8. AZITHROMYCIN ANHYDROUS. [Concomitant]
     Active Substance: AZITHROMYCIN ANHYDROUS
     Dosage: 2
     Route: 065
     Dates: start: 20180405
  9. GABAPENTIN. [Concomitant]
     Active Substance: GABAPENTIN
     Dosage: 10
     Route: 065
     Dates: start: 20180327
  10. ESBRIET [Suspect]
     Active Substance: PIRFENIDONE
     Indication: PRODUCT USED FOR UNKNOWN INDICATION
     Route: 048
  11. CARVEDILOL. [Concomitant]
     Active Substance: CARVEDILOL
     Dosage: 3.1
     Route: 065
     Dates: start: 20180510
  12. BUMETANIDE. [Concomitant]
     Active Substance: BUMETANIDE
     Route: 065
     Dates: start: 20180510
  13. HUMALOG [Concomitant]
     Active Substance: INSULIN LISPRO
     Dosage: 10
     Route: 065
     Dates: start: 20180426
  14. FAMOTIDINE. [Concomitant]
     Active Substance: FAMOTIDINE
     Route: 065
     Dates: start: 20180313
  15. REPAGLINIDE. [Concomitant]
     Active Substance: REPAGLINIDE
     Route: 065
     Dates: start: 20180510
  16. GLIMEPIRIDE. [Concomitant]
     Active Substance: GLIMEPIRIDE
     Route: 065
     Dates: start: 20180510
  17. GLIMEPIRIDE. [Concomitant]
     Active Substance: GLIMEPIRIDE
     Route: 065
     Dates: start: 20180227
  18. GABAPENTIN. [Concomitant]
     Active Substance: GABAPENTIN
     Dosage: 10
     Route: 065
     Dates: start: 20180226

REACTIONS (1)
  - Lung disorder [Not Recovered/Not Resolved]

NARRATIVE: CASE EVENT DATE: 20180518
